FAERS Safety Report 13942681 (Version 1)
Quarter: 2017Q3

REPORT INFORMATION
  Report Type: Spontaneous
  Country: US (occurrence: US)
  Receive Date: 20170906
  Receipt Date: 20170906
  Transmission Date: 20171127
  Serious: Yes (Hospitalization, Other)
  Sender: FDA-Public Use
  Company Number: US-TAKEDA-2017TUS018386

PATIENT
  Sex: Female
  Weight: 113.38 kg

DRUGS (1)
  1. ENTYVIO [Suspect]
     Active Substance: VEDOLIZUMAB
     Indication: CROHN^S DISEASE
     Dosage: 300 MG, UNK
     Route: 065
     Dates: start: 201609

REACTIONS (7)
  - Anaemia [Unknown]
  - Sepsis [Unknown]
  - Dyspnoea [Recovered/Resolved]
  - Impaired healing [Recovering/Resolving]
  - Rectal haemorrhage [Not Recovered/Not Resolved]
  - Intestinal perforation [Unknown]
  - Dehydration [Recovered/Resolved]
